FAERS Safety Report 7417674-3 (Version None)
Quarter: 2011Q2

REPORT INFORMATION
  Report Type: 
  Country: None (occurrence: None)
  Receive Date: 20110415
  Receipt Date: 20110404
  Transmission Date: 20111010
  Serious: Yes (Hospitalization, Other)
  Sender: FDA-Public Use
  Company Number: DE-ELI_LILLY_AND_COMPANY-10-11-00181

PATIENT
  Weight: 67.2 kg

DRUGS (12)
  1. APREPITANT [Concomitant]
     Indication: NAUSEA
     Dosage: UNK, UNK
     Route: 065
     Dates: start: 20100529, end: 20100530
  2. PEMETREXED [Suspect]
     Indication: NON-SMALL CELL LUNG CANCER
     Dosage: 960 MG, 1 IN 3 WK
     Route: 042
     Dates: start: 20100528
  3. BUDESONIDE [Concomitant]
     Indication: DYSPNOEA
     Dosage: UNK, UNK
     Route: 065
     Dates: start: 20100330
  4. INDACATEROL [Concomitant]
     Indication: DYSPNOEA
     Dosage: UNK, UNK
     Route: 065
     Dates: start: 20100330
  5. APREPITANT [Concomitant]
     Dosage: UNK, UNK
     Route: 065
     Dates: start: 20100618, end: 20100619
  6. DEXAMETHASONE [Concomitant]
     Dosage: UNK, UNK
     Route: 065
     Dates: start: 20100618, end: 20100620
  7. ENOXAPARIN SODIUM [Concomitant]
     Indication: ARTERITIS
     Dosage: UNK, UNK
     Route: 065
     Dates: start: 20100306
  8. NECITUMUMAB (11F8) (LY3012211) [Suspect]
     Indication: NON-SMALL CELL LUNG CANCER
     Dosage: 800 MG, 2 IN 3 WK
     Route: 042
     Dates: start: 20100528
  9. DEXAMETHASONE [Concomitant]
     Indication: NAUSEA
     Dosage: UNK, UNK
     Route: 065
     Dates: start: 20100529, end: 20100531
  10. FUROSEMIDE [Concomitant]
     Indication: WEIGHT INCREASED
     Dosage: 40 MG, UNK
     Route: 065
     Dates: start: 20100529, end: 20100529
  11. CISPLATIN [Suspect]
     Indication: NON-SMALL CELL LUNG CANCER
     Dosage: 144 MG, 1 IN 3 WK
     Route: 042
     Dates: start: 20100528
  12. METOCLOPRAMIDE [Concomitant]
     Indication: NAUSEA
     Dosage: 80 MG, UNK
     Route: 065
     Dates: start: 20100616

REACTIONS (6)
  - LEUKOPENIA [None]
  - INTESTINAL ISCHAEMIA [None]
  - HYPOMAGNESAEMIA [None]
  - STAPHYLOCOCCAL INFECTION [None]
  - HYPOCALCAEMIA [None]
  - VOMITING [None]
